FAERS Safety Report 12596075 (Version 1)
Quarter: 2016Q3

REPORT INFORMATION
  Report Type: Spontaneous
  Country: US (occurrence: US)
  Receive Date: 20160727
  Receipt Date: 20160727
  Transmission Date: 20161109
  Serious: No
  Sender: FDA-Public Use
  Company Number: US-BEH-2014045001

PATIENT
  Age: 79 Year
  Sex: Male

DRUGS (3)
  1. HIZENTRA [Suspect]
     Active Substance: HUMAN IMMUNOGLOBULIN G
     Indication: MYOSITIS
     Dosage: INFUSES ONCE WEEKLY FOR A TOTAL OF 1.6 G/KG EVERY MONTH
     Route: 058
  2. HIZENTRA [Suspect]
     Active Substance: HUMAN IMMUNOGLOBULIN G
     Indication: CHRONIC INFLAMMATORY DEMYELINATING POLYRADICULONEUROPATHY
  3. HIZENTRA [Suspect]
     Active Substance: HUMAN IMMUNOGLOBULIN G
     Indication: MYALGIA
     Dosage: VIA FREEDOM 60 PUMP
     Route: 058
     Dates: start: 20140214

REACTIONS (2)
  - Keratoacanthoma [Unknown]
  - Keratoacanthoma [Unknown]

NARRATIVE: CASE EVENT DATE: 20140905
